FAERS Safety Report 22049486 (Version 1)
Quarter: 2023Q1

REPORT INFORMATION
  Report Type: Spontaneous
  Country: US (occurrence: None)
  Receive Date: 20230228
  Receipt Date: 20230228
  Transmission Date: 20230418
  Serious: No
  Sender: FDA-Public Use
  Company Number: None

PATIENT
  Age: 49 Year
  Sex: Female
  Weight: 74.25 kg

DRUGS (5)
  1. RHOFADE [Suspect]
     Active Substance: OXYMETAZOLINE HYDROCHLORIDE
     Indication: Rosacea
     Dosage: OTHER QUANTITY : 1 THIN LAYER;?FREQUENCY : DAILY;?
     Route: 061
     Dates: start: 20230207, end: 20230217
  2. AZELEX [Concomitant]
     Active Substance: AZELAIC ACID
  3. ALBUTEROL [Concomitant]
     Active Substance: ALBUTEROL
  4. spacer [Concomitant]
  5. ZYRTEC [Concomitant]
     Active Substance: CETIRIZINE HYDROCHLORIDE

REACTIONS (3)
  - Pruritus [None]
  - Erythema [None]
  - Rash [None]

NARRATIVE: CASE EVENT DATE: 20230207
